FAERS Safety Report 20693256 (Version 5)
Quarter: 2023Q4

REPORT INFORMATION
  Report Type: Spontaneous
  Country: PK (occurrence: PK)
  Receive Date: 20220410
  Receipt Date: 20231226
  Transmission Date: 20240110
  Serious: Yes (Other)
  Sender: FDA-Public Use
  Company Number: PK-PFIZER INC-2021367706

PATIENT
  Age: 60 Year
  Sex: Male
  Weight: 46 kg

DRUGS (12)
  1. ENBREL [Suspect]
     Active Substance: ETANERCEPT
     Indication: Psoriatic arthropathy
     Dosage: 50 MG, WEEKLY
     Route: 058
     Dates: start: 202104
  2. ENBREL [Suspect]
     Active Substance: ETANERCEPT
     Indication: Osteomyelitis
     Dosage: UNK
     Route: 065
  3. DELTACORTRIL [Concomitant]
     Active Substance: PREDNISOLONE
     Dosage: 5 MG, (2+1+0, FOR 2 WEEKS THEN STOP)
     Route: 065
  4. ETORICOXIB [Concomitant]
     Active Substance: ETORICOXIB
     Dosage: 60 MG, (1+0, WHEN NEEDED)
     Route: 065
  5. Distalgesic [Concomitant]
     Dosage: 1+1
     Route: 065
  6. LEFLUNOMIDE [Concomitant]
     Active Substance: LEFLUNOMIDE
     Dosage: 20 MG, 1+0
     Route: 065
  7. ESCITALOPRAM OXALATE [Concomitant]
     Active Substance: ESCITALOPRAM OXALATE
     Dosage: 10 MG, HALF FOR 1 WEEK AND THEN 1 CONTINUE
     Route: 065
  8. EDONAX [Concomitant]
     Dosage: UNK, X 3MONTHS
     Route: 065
  9. EDONAX [Concomitant]
     Dosage: UNK
     Route: 065
  10. NUBEROL [Concomitant]
     Dosage: UNK
  11. Bionic [Concomitant]
     Dosage: 150 MG EVERY 4 WEEKS
     Route: 065
  12. LEFLUNOMIDE [Concomitant]
     Active Substance: LEFLUNOMIDE
     Dosage: UNK
     Route: 065

REACTIONS (9)
  - C-reactive protein increased [Unknown]
  - Inflammatory marker increased [Unknown]
  - Red blood cell sedimentation rate increased [Unknown]
  - Arthritis [Unknown]
  - Dry skin [Unknown]
  - Arthralgia [Recovering/Resolving]
  - Rash [Recovering/Resolving]
  - Upper respiratory tract infection [Unknown]
  - Headache [Unknown]
